FAERS Safety Report 9493981 (Version 1)
Quarter: 2013Q3

REPORT INFORMATION
  Report Type: Spontaneous
  Country: US (occurrence: US)
  Receive Date: 20130903
  Receipt Date: 20130903
  Transmission Date: 20140515
  Serious: No
  Sender: FDA-Public Use
  Company Number: US-009507513-1308USA012024

PATIENT
  Sex: 0

DRUGS (1)
  1. VICTRELIS [Suspect]
     Route: 048

REACTIONS (3)
  - Inappropriate schedule of drug administration [Unknown]
  - Underdose [Unknown]
  - No adverse event [Unknown]
